FAERS Safety Report 24254198 (Version 2)
Quarter: 2024Q4

REPORT INFORMATION
  Report Type: Spontaneous
  Country: CA (occurrence: CA)
  Receive Date: 20240827
  Receipt Date: 20241010
  Transmission Date: 20250115
  Serious: Yes (Disabling, Other)
  Sender: PFIZER
  Company Number: CA-PFIZER INC-202400243876

PATIENT
  Age: 74 Year
  Sex: Male

DRUGS (4)
  1. VYNDAMAX [Suspect]
     Active Substance: TAFAMIDIS
     Indication: Amyloidosis
     Dosage: 61 MG, DAILY
     Dates: start: 20230915
  2. APIXABAN [Concomitant]
     Active Substance: APIXABAN
     Indication: Atrial fibrillation
     Dosage: 5 MG, 2X/DAY
     Dates: start: 201904
  3. EPLERENONE [Concomitant]
     Active Substance: EPLERENONE
     Indication: Cardiac failure
     Dosage: 25 MG, DAILY
  4. FUROSEMIDE [Concomitant]
     Active Substance: FUROSEMIDE
     Indication: Cardiac failure
     Dosage: 20 MG, 2X/DAY

REACTIONS (3)
  - Endocrine ophthalmopathy [Not Recovered/Not Resolved]
  - Blood thyroid stimulating hormone decreased [Unknown]
  - Thyroxine decreased [Unknown]

NARRATIVE: CASE EVENT DATE: 20240201
